FAERS Safety Report 24562297 (Version 1)
Quarter: 2024Q4

REPORT INFORMATION
  Report Type: Spontaneous
  Country: DE (occurrence: DE)
  Receive Date: 20241029
  Receipt Date: 20241029
  Transmission Date: 20250115
  Serious: Yes (Other)
  Sender: UCB
  Company Number: DE-UCBSA-2024055189

PATIENT
  Age: 26 Year
  Sex: Male

DRUGS (1)
  1. LEVETIRACETAM [Suspect]
     Active Substance: LEVETIRACETAM
     Indication: Seizure
     Dosage: 1000 MILLIGRAM PER DAY

REACTIONS (5)
  - Seizure [Unknown]
  - Fatigue [Unknown]
  - Irritability [Unknown]
  - Anger [Unknown]
  - Drug ineffective [Unknown]
